FAERS Safety Report 18634996 (Version 1)
Quarter: 2020Q4

REPORT INFORMATION
  Report Type: Other
  Country: JP (occurrence: JP)
  Receive Date: 20201218
  Receipt Date: 20201218
  Transmission Date: 20210114
  Serious: Yes (Other)
  Sender: FDA-Public Use
  Company Number: JP-ROCHE-2726836

PATIENT
  Age: 70 Year
  Sex: Female

DRUGS (4)
  1. PACLITAXEL. [Suspect]
     Active Substance: PACLITAXEL
     Indication: EXTRAMAMMARY PAGET^S DISEASE
     Route: 041
  2. TRASTUZUMAB. [Suspect]
     Active Substance: TRASTUZUMAB
     Indication: EXTRAMAMMARY PAGET^S DISEASE
     Route: 065
  3. VINORELBINE [Concomitant]
     Active Substance: VINORELBINE TARTRATE
  4. TRASTUZUMAB. [Suspect]
     Active Substance: TRASTUZUMAB
     Route: 041

REACTIONS (6)
  - Leukopenia [Unknown]
  - Neutropenia [Unknown]
  - Intentional product use issue [Unknown]
  - Cardiotoxicity [Unknown]
  - Platelet count decreased [Unknown]
  - Off label use [Unknown]
